FAERS Safety Report 5143892-3 (Version None)
Quarter: 2006Q4

REPORT INFORMATION
  Report Type: 
  Country: None (occurrence: None)
  Receive Date: 20061102
  Receipt Date: 20061102
  Transmission Date: 20070319
  Serious: Yes (Other)
  Sender: FDA-Public Use
  Company Number: None

PATIENT
  Sex: Female

DRUGS (1)
  1. LEVLITE [Suspect]

REACTIONS (9)
  - ANXIETY [None]
  - CARDIAC DISORDER [None]
  - CHEST DISCOMFORT [None]
  - CONTRAINDICATION TO MEDICAL TREATMENT [None]
  - DEPRESSION [None]
  - FATIGUE [None]
  - PAIN IN EXTREMITY [None]
  - PULMONARY THROMBOSIS [None]
  - THROMBOSIS [None]
